FAERS Safety Report 9410037 (Version 3)
Quarter: 2013Q4

REPORT INFORMATION
  Report Type: Spontaneous
  Country: US (occurrence: None)
  Receive Date: 20130515
  Receipt Date: 20131010
  Transmission Date: 20140711
  Serious: Yes (Hospitalization, Other)
  Sender: FDA-Public Use
  Company Number: 2013-000310

PATIENT
  Age: 50 Year
  Sex: Female

DRUGS (24)
  1. ACTONEL [Suspect]
     Indication: OSTEOPOROSIS
     Route: 048
     Dates: start: 20010615, end: 200112
  2. ACTONEL [Suspect]
     Indication: OSTEOPOROSIS PROPHYLAXIS
     Route: 048
     Dates: start: 20010615, end: 200112
  3. ACTONEL [Suspect]
     Indication: OSTEOPENIA
     Route: 048
     Dates: start: 20010615, end: 200112
  4. FOSAMAX (ALENDRONATE SODIUM) [Suspect]
     Indication: OSTEOPOROSIS
     Route: 048
     Dates: start: 20011207, end: 20120317
  5. FOSAMAX (ALENDRONATE SODIUM) [Suspect]
     Route: 048
     Dates: start: 20011207, end: 20120317
  6. FOSAMAX (ALENDRONATE SODIUM) [Suspect]
     Route: 048
     Dates: start: 20011207, end: 20120317
  7. ALENDRONATE (ALENDRONATE SODIUM) [Suspect]
     Route: 048
     Dates: start: 200905, end: 20120317
  8. ALTACE (RAMIPRIL) [Concomitant]
  9. VERAPAMIL (VERAPAMIL) [Concomitant]
  10. DIOVAN HCT (HYDROCHLOROTHIAZIDE, VALSARTAN) [Concomitant]
  11. TRIAMTERENE AND HYDROCHLOROTHIAZIDE, TRIAMTERENE) [Concomitant]
  12. NADOLOL (NADOLOL) [Concomitant]
  13. TOPROL (METOPROLOL SUCCINATE) [Concomitant]
  14. ISOSORBIDE MONONITRATE (ISOSORBIDE MONONITRATE) [Concomitant]
  15. ULTRAM (TRAMADOL HYDROCHLORIDE) [Concomitant]
  16. NORCO (HYDROCODONE BITARTRATE, PARACETAMOL) [Concomitant]
  17. BUTALBITAL W/CAFFEINE/PARACETAMOL (BUTALBITAL, CAFFEINE, PARACETAMOL) [Concomitant]
  18. FELODIPINE (FELODIPINE) [Concomitant]
  19. MELOXICAM (MELOXICAM) [Concomitant]
  20. IBUPROFEN (IBUPROFEN) [Concomitant]
  21. PROTONIX (PANTOPRAZOLE SODIUM SESQUIHYDRATE) [Concomitant]
  22. PREMPHASE (ESTROGENS CONJUGATED, MEDROXYPROGESTERONE ACETATE) [Concomitant]
  23. NIFEREX /01214501/ (POLYSACCHARIDE-IRON COMPLEX) [Concomitant]
  24. CALTRATE + D/00944201/ (CALCIUM CARBONATE, COLECALCIFEROL) [Concomitant]

REACTIONS (10)
  - Atypical femur fracture [None]
  - Femur fracture [None]
  - Pathological fracture [None]
  - Stress fracture [None]
  - Fall [None]
  - Fracture displacement [None]
  - Gastrointestinal disorder [None]
  - Bone disorder [None]
  - Pain [None]
  - Low turnover osteopathy [None]
